FAERS Safety Report 4654123-2 (Version None)
Quarter: 2005Q2

REPORT INFORMATION
  Report Type: 
  Country: None (occurrence: None)
  Receive Date: 20050505
  Receipt Date: 20041229
  Transmission Date: 20051028
  Serious: Yes (Life-Threatening, Hospitalization, Disabling)
  Sender: FDA-Public Use
  Company Number: US-MERCK-0412USA03255

PATIENT
  Age: 90 Year
  Sex: Female

DRUGS (1)
  1. VIOXX [Suspect]
     Indication: ARTHRITIS
     Route: 048
     Dates: end: 20040930

REACTIONS (1)
  - CEREBROVASCULAR ACCIDENT [None]
